FAERS Safety Report 8032487-X (Version None)
Quarter: 2011Q4

REPORT INFORMATION
  Report Type: 
  Country: None (occurrence: None)
  Receive Date: 20111222
  Receipt Date: 20111207
  Transmission Date: 20120403
  Serious: Yes (Other)
  Sender: FDA-Public Use
  Company Number: US_1187314

PATIENT
  Age: 73 Year
  Sex: Female
  Weight: 73.4827 kg

DRUGS (1)
  1. TRAVATAN Z [Suspect]
     Indication: ANGLE CLOSURE GLAUCOMA
     Dosage: (1 GTT QD OS OPHTHALMIC)
     Route: 047

REACTIONS (11)
  - PHARYNGEAL OEDEMA [None]
  - NERVOUSNESS [None]
  - URINARY INCONTINENCE [None]
  - INTRAOCULAR PRESSURE INCREASED [None]
  - CATARACT [None]
  - HEART RATE ABNORMAL [None]
  - EAR DISCOMFORT [None]
  - HYPERSENSITIVITY [None]
  - EYELID OEDEMA [None]
  - BLADDER PROLAPSE [None]
  - CONJUNCTIVAL HAEMORRHAGE [None]
